FAERS Safety Report 8964625 (Version 1)
Quarter: 2012Q4

REPORT INFORMATION
  Report Type: 
  Country: US (occurrence: US)
  Receive Date: 20121214
  Receipt Date: 20121214
  Transmission Date: 20130627
  Serious: No
  Sender: FDA-Public Use
  Company Number: US-PFIZER INC-2012316873

PATIENT
  Age: 53 Year
  Sex: Female
  Weight: 111 kg

DRUGS (4)
  1. LYRICA [Suspect]
     Indication: NEUROPATHY
     Dosage: 450 mg (3 capsules of 150mg), daily
     Route: 048
     Dates: start: 201206
  2. INSULIN [Concomitant]
     Indication: DIABETES
     Dosage: UNK
  3. LISINOPRIL [Concomitant]
     Indication: BLOOD PRESSURE HIGH
     Dosage: 20 mg, daily
  4. CARVEDILOL [Concomitant]
     Indication: CONGESTIVE HEART FAILURE
     Dosage: UNK

REACTIONS (1)
  - Pain [Unknown]
